FAERS Safety Report 4815450-9 (Version None)
Quarter: 2005Q4

REPORT INFORMATION
  Report Type: 
  Country: None (occurrence: None)
  Receive Date: 20051027
  Receipt Date: 20051027
  Transmission Date: 20060501
  Serious: Yes (Hospitalization)
  Sender: FDA-Public Use
  Company Number: None

PATIENT
  Sex: Male
  Weight: 78.2 kg

DRUGS (5)
  1. TEMOZOLOMIDE [Suspect]
     Indication: GLIOBLASTOMA MULTIFORME
     Dosage: SEE IMAGE
     Dates: start: 20050907, end: 20051005
  2. TEMOZOLOMIDE [Suspect]
     Indication: GLIOBLASTOMA MULTIFORME
     Dosage: SEE IMAGE
     Dates: start: 20050907
  3. IRINOTECAN [Suspect]
     Dosage: SEE IMAGE
  4. RADIATION THERAPY [Suspect]
     Dosage: SEE IMAGE
  5. DEXAMETHASONE [Concomitant]

REACTIONS (3)
  - DYSPNOEA [None]
  - LIMB DISCOMFORT [None]
  - PULMONARY EMBOLISM [None]
